FAERS Safety Report 5726382-6 (Version None)
Quarter: 2008Q2

REPORT INFORMATION
  Report Type: 
  Country: None (occurrence: None)
  Receive Date: 20080502
  Receipt Date: 20070803
  Transmission Date: 20081010
  Serious: No
  Sender: FDA-Public Use
  Company Number: US-BAYER-200712499BCC

PATIENT
  Sex: Female

DRUGS (1)
  1. RID MOUSSE [Suspect]
     Indication: DRUG EXPOSURE DURING PREGNANCY

REACTIONS (1)
  - DRUG EXPOSURE DURING PREGNANCY [None]
